FAERS Safety Report 7605393-X (Version None)
Quarter: 2011Q3

REPORT INFORMATION
  Report Type: 
  Country: None (occurrence: None)
  Receive Date: 20110713
  Receipt Date: 20110629
  Transmission Date: 20111222
  Serious: Yes (Other)
  Sender: FDA-Public Use
  Company Number: US-BAYER-201031337NA

PATIENT
  Age: 22 Year
  Sex: Female
  Weight: 90.703 kg

DRUGS (6)
  1. XANAX [Concomitant]
  2. YAZ [Suspect]
     Dosage: UNK
     Route: 048
     Dates: start: 20070101, end: 20090101
  3. MULTI-VITAMIN [Concomitant]
  4. AMOXI-CLAVULANICO [Concomitant]
     Dosage: 875 MG, UNK
  5. BENADRYL [Concomitant]
  6. YASMIN [Suspect]
     Route: 048

REACTIONS (2)
  - CHOLECYSTITIS ACUTE [None]
  - CHOLECYSTECTOMY [None]
